FAERS Safety Report 19932777 (Version 1)
Quarter: 2021Q4

REPORT INFORMATION
  Report Type: Spontaneous
  Country: US (occurrence: US)
  Receive Date: 20211007
  Receipt Date: 20211007
  Transmission Date: 20220303
  Serious: Yes (Other)
  Sender: FDA-Public Use
  Company Number: None

PATIENT
  Age: 57 Year
  Sex: Female
  Weight: 70.2 kg

DRUGS (3)
  1. TRULICITY [Suspect]
     Active Substance: DULAGLUTIDE
  2. SYNJARDY [Concomitant]
     Active Substance: EMPAGLIFLOZIN\METFORMIN HYDROCHLORIDE
  3. LOSARTAN [Concomitant]
     Active Substance: LOSARTAN

REACTIONS (7)
  - Impaired gastric emptying [None]
  - Eructation [None]
  - Helicobacter infection [None]
  - Vomiting [None]
  - Dysgeusia [None]
  - Decreased appetite [None]
  - Parosmia [None]

NARRATIVE: CASE EVENT DATE: 20210422
